FAERS Safety Report 13661705 (Version 3)
Quarter: 2017Q3

REPORT INFORMATION
  Report Type: Spontaneous
  Country: AU (occurrence: AU)
  Receive Date: 20170616
  Receipt Date: 20170907
  Transmission Date: 20171127
  Serious: Yes (Death, Other)
  Sender: FDA-Public Use
  Company Number: AU-NOVOPROD-549467

PATIENT
  Age: 25 Month
  Sex: Female
  Weight: 19.5 kg

DRUGS (4)
  1. HYDROCORTISONE. [Concomitant]
     Active Substance: HYDROCORTISONE
     Indication: ADRENOCORTICOTROPIC HORMONE DEFICIENCY
     Dosage: 7 MG, QD
     Route: 048
     Dates: start: 20150429
  2. THYROXINE [Concomitant]
     Active Substance: LEVOTHYROXINE
     Indication: THYROID STIMULATING HORMONE DEFICIENCY
     Dosage: 37.5 ?G, QD
     Route: 048
     Dates: start: 20150505
  3. DESMOPRESSIN [Concomitant]
     Active Substance: DESMOPRESSIN
     Indication: DIABETES INSIPIDUS
     Dosage: 90 ?G, QD
     Route: 048
     Dates: start: 20150504
  4. NORDITROPIN [Suspect]
     Active Substance: SOMATROPIN
     Indication: GROWTH HORMONE DEFICIENCY
     Dosage: 0.46 MG, QD
     Route: 058
     Dates: start: 20150508

REACTIONS (2)
  - Adrenocortical insufficiency acute [Fatal]
  - Irritability [Unknown]

NARRATIVE: CASE EVENT DATE: 20170516
